FAERS Safety Report 8359400-X (Version None)
Quarter: 2012Q2

REPORT INFORMATION
  Report Type: 
  Country: None (occurrence: None)
  Receive Date: 20120514
  Receipt Date: 20120514
  Transmission Date: 20120825
  Serious: No
  Sender: FDA-Public Use
  Company Number: None

PATIENT
  Age: 14 Month
  Sex: Male
  Weight: 11.3399 kg

DRUGS (1)
  1. TAMIFLU [Suspect]
     Indication: INFLUENZA
     Dosage: 7.5ML 2 X DAY PO
     Route: 048
     Dates: start: 20120510, end: 20120510

REACTIONS (3)
  - CONVERSION DISORDER [None]
  - CONFUSIONAL STATE [None]
  - DISORIENTATION [None]
